FAERS Safety Report 6178072-6 (Version None)
Quarter: 2009Q2

REPORT INFORMATION
  Report Type: 
  Country: None (occurrence: None)
  Receive Date: 20090501
  Receipt Date: 20090501
  Transmission Date: 20091009
  Serious: No
  Sender: FDA-Public Use
  Company Number: None

PATIENT

DRUGS (3)
  1. PROPAFENONE HCL [Suspect]
  2. ASPIRIN [Concomitant]
  3. COUMADIN [Concomitant]

REACTIONS (4)
  - ATRIAL FIBRILLATION [None]
  - HEART RATE IRREGULAR [None]
  - INCORRECT DOSE ADMINISTERED [None]
  - PRODUCT QUALITY ISSUE [None]
